FAERS Safety Report 6503665-3 (Version None)
Quarter: 2009Q4

REPORT INFORMATION
  Report Type: 
  Country: None (occurrence: None)
  Receive Date: 20091217
  Receipt Date: 20091210
  Transmission Date: 20100525
  Serious: Yes (Other)
  Sender: FDA-Public Use
  Company Number: GB-TEVA-217847ISR

PATIENT
  Age: 70 Year
  Sex: Male

DRUGS (3)
  1. AMITRIPTYLINE [Suspect]
     Indication: NEURALGIA
     Route: 048
  2. TRAMADOL HCL [Interacting]
     Indication: PAIN
     Route: 048
     Dates: start: 20091028
  3. TRAMADOL HCL [Interacting]
     Route: 048
     Dates: end: 20091106

REACTIONS (3)
  - ASTHENIA [None]
  - DRUG INTERACTION [None]
  - WITHDRAWAL SYNDROME [None]
